FAERS Safety Report 5711349-4 (Version None)
Quarter: 2008Q2

REPORT INFORMATION
  Report Type: 
  Country: None (occurrence: None)
  Receive Date: 20080421
  Receipt Date: 20080411
  Transmission Date: 20081010
  Serious: Yes (Hospitalization)
  Sender: FDA-Public Use
  Company Number: B0500257C

PATIENT
  Age: 80 Year
  Sex: Female
  Weight: 41.5 kg

DRUGS (2)
  1. LAPATINIB [Suspect]
     Dosage: 1250MG PER DAY
     Route: 048
     Dates: start: 20080215
  2. CAPECITABINE [Suspect]
     Dosage: 750MG TWICE PER DAY
     Route: 048
     Dates: start: 20080215

REACTIONS (2)
  - DIARRHOEA [None]
  - GASTROENTERITIS [None]
